FAERS Safety Report 4629756-X (Version None)
Quarter: 2005Q1

REPORT INFORMATION
  Report Type: 
  Country: None (occurrence: None)
  Receive Date: 20050107
  Receipt Date: 20041111
  Transmission Date: 20050727
  Serious: No
  Sender: FDA-Public Use
  Company Number: 235568K04USA

PATIENT
  Age: 33 Year
  Sex: Female

DRUGS (1)
  1. REBIF [Suspect]
     Indication: MULTIPLE SCLEROSIS
     Dosage: 44 MCG, 3 IN 1 WEEKS, SUBCUTANEOUS
     Route: 058
     Dates: start: 20040324

REACTIONS (7)
  - CHILLS [None]
  - COORDINATION ABNORMAL [None]
  - DYSPHEMIA [None]
  - HEADACHE [None]
  - INJECTION SITE IRRITATION [None]
  - SPEECH DISORDER [None]
  - VISUAL DISTURBANCE [None]
